FAERS Safety Report 5731863-5 (Version None)
Quarter: 2008Q2

REPORT INFORMATION
  Report Type: 
  Country: None (occurrence: None)
  Receive Date: 20080508
  Receipt Date: 20080506
  Transmission Date: 20081010
  Serious: Yes (Hospitalization)
  Sender: FDA-Public Use
  Company Number: D0056560A

PATIENT
  Age: 64 Year
  Sex: Female
  Weight: 98.2 kg

DRUGS (7)
  1. REQUIP [Suspect]
     Indication: PARKINSON'S DISEASE
     Dosage: 5MG THREE TIMES PER DAY
     Route: 048
     Dates: start: 19980101, end: 20071201
  2. MADOPAR [Concomitant]
     Indication: PARKINSON'S DISEASE
     Dosage: 62.5MG SIX TIMES PER DAY
     Route: 048
  3. STALEVO 100 [Concomitant]
     Indication: PARKINSON'S DISEASE
     Dosage: 262.5MG UNKNOWN
     Route: 048
  4. LEVOCARB [Concomitant]
     Indication: PARKINSON'S DISEASE
     Dosage: 125MG UNKNOWN
     Route: 048
  5. ENTACAPONE [Concomitant]
     Indication: PARKINSON'S DISEASE
     Dosage: 200MG UNKNOWN
     Route: 048
  6. DELIX [Concomitant]
     Dosage: 5MG UNKNOWN
     Route: 048
  7. AMANTADINE HCL [Concomitant]
     Indication: PARKINSON'S DISEASE
     Dosage: 100MG THREE TIMES PER DAY
     Route: 048

REACTIONS (12)
  - CONSTIPATION [None]
  - DEPRESSION [None]
  - HYPERHIDROSIS [None]
  - IMPULSE-CONTROL DISORDER [None]
  - INITIAL INSOMNIA [None]
  - MICTURITION URGENCY [None]
  - OEDEMA PERIPHERAL [None]
  - PAIN IN EXTREMITY [None]
  - PATHOLOGICAL GAMBLING [None]
  - RESTLESSNESS [None]
  - SALIVARY HYPERSECRETION [None]
  - THINKING ABNORMAL [None]
